FAERS Safety Report 9668916 (Version 1)
Quarter: 2013Q4

REPORT INFORMATION
  Report Type: Spontaneous
  Country: PT (occurrence: PT)
  Receive Date: 20131105
  Receipt Date: 20131105
  Transmission Date: 20140711
  Serious: Yes (Other)
  Sender: FDA-Public Use
  Company Number: PT-UCBSA-101917

PATIENT
  Sex: Female

DRUGS (5)
  1. LEVETIRACETAM [Suspect]
     Indication: STATUS EPILEPTICUS
  2. VALPROATE [Concomitant]
  3. PHENYTOIN [Concomitant]
  4. TOPIRAMATE [Concomitant]
  5. LEVOTHYROXINE [Concomitant]

REACTIONS (2)
  - Status epilepticus [Recovering/Resolving]
  - Cognitive disorder [Recovering/Resolving]
